FAERS Safety Report 7295349-1 (Version None)
Quarter: 2011Q1

REPORT INFORMATION
  Report Type: 
  Country: None (occurrence: None)
  Receive Date: 20110216
  Receipt Date: 20110204
  Transmission Date: 20110831
  Serious: Yes (Hospitalization)
  Sender: FDA-Public Use
  Company Number: GB-RANBAXY-2011R1-41666

PATIENT
  Age: 76 Year
  Sex: Female

DRUGS (2)
  1. OMEPRAZOLE [Suspect]
     Indication: PRODUCT USED FOR UNKNOWN INDICATION
     Dosage: UNK
     Route: 065
  2. FUROSEMIDE [Suspect]
     Indication: GRAVITATIONAL OEDEMA
     Dosage: UNK
     Route: 065

REACTIONS (7)
  - NAUSEA [None]
  - FALL [None]
  - DIZZINESS [None]
  - HYPOCALCAEMIA [None]
  - HYPOMAGNESAEMIA [None]
  - DECREASED APPETITE [None]
  - MOBILITY DECREASED [None]
